FAERS Safety Report 6041329-3 (Version None)
Quarter: 2009Q1

REPORT INFORMATION
  Report Type: 
  Country: None (occurrence: None)
  Receive Date: 20090116
  Receipt Date: 20081029
  Transmission Date: 20090719
  Serious: No
  Sender: FDA-Public Use
  Company Number: US-BRISTOL-MYERS SQUIBB COMPANY-14356307

PATIENT
  Age: 29 Year
  Sex: Male

DRUGS (8)
  1. ABILIFY [Suspect]
     Indication: POST-TRAUMATIC STRESS DISORDER
     Route: 048
     Dates: start: 20080110, end: 20080110
  2. ABILIFY [Suspect]
     Indication: MAJOR DEPRESSION
     Route: 048
     Dates: start: 20080110, end: 20080110
  3. ABILIFY [Suspect]
     Indication: ANGER
     Route: 048
     Dates: start: 20080110, end: 20080110
  4. ABILIFY [Suspect]
     Indication: IRRITABILITY
     Route: 048
     Dates: start: 20080110, end: 20080110
  5. LYRICA [Concomitant]
  6. TRAMADOL HCL [Concomitant]
  7. PRILOSEC [Concomitant]
  8. LAMICTAL [Concomitant]

REACTIONS (2)
  - DYSTONIA [None]
  - INFLUENZA LIKE ILLNESS [None]
